FAERS Safety Report 21613137 (Version 1)
Quarter: 2022Q4

REPORT INFORMATION
  Report Type: Other
  Country: CN (occurrence: None)
  Receive Date: 20221118
  Receipt Date: 20221118
  Transmission Date: 20230112
  Serious: Yes (Other)
  Sender: FDA-Public Use
  Company Number: CN-ROCHE-3221450

PATIENT

DRUGS (3)
  1. BEVACIZUMAB [Suspect]
     Active Substance: BEVACIZUMAB
     Indication: Non-small cell lung cancer
     Dosage: DOSE 7.5 MG/KG.M2) THE DRUG WAS TAKEN ON THE DAY OF CHEMOTHERAPY AND THE EFFICACY WAS EVALUATED ON 1
     Route: 041
  2. CISPLATIN [Suspect]
     Active Substance: CISPLATIN
     Indication: Non-small cell lung cancer
     Dosage: 30 MG/VIAL), 20 MG/(KG/M2) WAS INTRAVENOUSLY DRIPPED ON DAYS 2 TO 5 OF CHEMOTHERAPY,
     Route: 041
  3. PACLITAXEL [Suspect]
     Active Substance: PACLITAXEL
     Indication: Non-small cell lung cancer
     Dosage: 130 MG/M2 DILUTED WITH 100 ML NORMAL SALINE, WAS INTRAVENOUSLY DRIPPED FOR 30 MIN ON DAYS 1 AND 8 FO
     Route: 041

REACTIONS (1)
  - Myelosuppression [Unknown]
